FAERS Safety Report 7112273-5 (Version None)
Quarter: 2010Q4

REPORT INFORMATION
  Report Type: 
  Country: None (occurrence: None)
  Receive Date: 20101119
  Receipt Date: 20100519
  Transmission Date: 20110411
  Serious: No
  Sender: FDA-Public Use
  Company Number: A0860421A

PATIENT
  Sex: Male

DRUGS (4)
  1. AVODART [Suspect]
     Indication: BENIGN PROSTATIC HYPERPLASIA
     Dosage: 1CAP PER DAY
     Route: 048
     Dates: start: 20090401, end: 20100401
  2. UROXATRAL [Concomitant]
  3. LANOXIN [Concomitant]
  4. ENALAPRIL MALEATE [Concomitant]

REACTIONS (1)
  - ERECTILE DYSFUNCTION [None]
